FAERS Safety Report 19159634 (Version 1)
Quarter: 2021Q2

REPORT INFORMATION
  Report Type: Report from Study
  Country: US (occurrence: US)
  Receive Date: 20210420
  Receipt Date: 20210420
  Transmission Date: 20210717
  Serious: Yes (Other)
  Sender: FDA-Public Use
  Company Number: US-BRISTOL-MYERS SQUIBB COMPANY-BMS-2021-036300

PATIENT
  Age: 83 Year
  Sex: Male
  Weight: 87.09 kg

DRUGS (1)
  1. APIXABAN [Suspect]
     Active Substance: APIXABAN
     Indication: PULMONARY EMBOLISM
     Dosage: 5 MILLIGRAM, BID
     Route: 048
     Dates: start: 2017

REACTIONS (3)
  - White blood cell count decreased [Unknown]
  - Urticaria [Recovered/Resolved]
  - Arthropathy [Recovered/Resolved]
